FAERS Safety Report 8283239 (Version 2)
Quarter: 2012Q4

REPORT INFORMATION
  Report Type: 
  Country: CA (occurrence: CA)
  Receive Date: 20111209
  Receipt Date: 20121130
  Transmission Date: 20130627
  Serious: Yes (Hospitalization, Other)
  Sender: FDA-Public Use
  Company Number: CA-ASTRAZENECA-2011SE73732

PATIENT
  Age: 817 Month
  Sex: Male

DRUGS (8)
  1. CRESTOR [Suspect]
     Route: 048
  2. TARCEVA [Interacting]
     Route: 048
  3. NORVASC [Concomitant]
     Route: 048
  4. ASA [Concomitant]
     Route: 048
  5. MOTILIUM [Concomitant]
     Route: 048
  6. PREVACID [Concomitant]
     Route: 048
  7. ZANTAC [Concomitant]
     Route: 048
  8. IMOVANE [Concomitant]
     Route: 048

REACTIONS (3)
  - Drug interaction [Recovered/Resolved]
  - Rhabdomyolysis [Recovered/Resolved]
  - Hepatitis [Recovered/Resolved]
